FAERS Safety Report 12138773 (Version 3)
Quarter: 2016Q2

REPORT INFORMATION
  Report Type: Spontaneous
  Country: US (occurrence: US)
  Receive Date: 20160302
  Receipt Date: 20160426
  Transmission Date: 20160815
  Serious: Yes (Disabling, Other)
  Sender: FDA-Public Use
  Company Number: US-REGENERON PHARMACEUTICALS, INC.-2016-12901

PATIENT

DRUGS (3)
  1. EYLEA [Suspect]
     Active Substance: AFLIBERCEPT
     Dosage: 2 MG, MONTHLY, LEFT EYE
     Route: 031
     Dates: start: 20160114, end: 20160114
  2. EYLEA [Suspect]
     Active Substance: AFLIBERCEPT
     Dosage: 2 MG, RIGHT EYE, MONTHLY
     Route: 031
     Dates: start: 20160223, end: 20160223
  3. EYLEA [Suspect]
     Active Substance: AFLIBERCEPT
     Indication: DIABETIC RETINAL OEDEMA
     Dosage: 2 MG MILLIGRAM(S), MONTHLY
     Route: 031
     Dates: start: 2014, end: 20160223

REACTIONS (2)
  - Blindness transient [Recovered/Resolved]
  - Intraocular pressure increased [Recovered/Resolved]

NARRATIVE: CASE EVENT DATE: 20160223
